FAERS Safety Report 4805199-0 (Version None)
Quarter: 2005Q4

REPORT INFORMATION
  Report Type: 
  Country: None (occurrence: None)
  Receive Date: 20051017
  Receipt Date: 20051005
  Transmission Date: 20060501
  Serious: Yes (Other)
  Sender: FDA-Public Use
  Company Number: 2005138765

PATIENT
  Sex: Female
  Weight: 61.2356 kg

DRUGS (4)
  1. DILANTIN [Suspect]
     Indication: EPILEPSY
     Dosage: 400 MG (200 MG, 2 IN 1 D), ORAL
     Route: 048
  2. PHENYTOIN [Suspect]
     Indication: EPILEPSY
     Dates: start: 20050101
  3. LAMICTAL [Concomitant]
  4. TEGRETOL [Concomitant]

REACTIONS (2)
  - BRAIN DAMAGE [None]
  - LIBIDO DECREASED [None]
